FAERS Safety Report 9318279 (Version 1)
Quarter: 2013Q2

REPORT INFORMATION
  Report Type: Spontaneous
  Country: US (occurrence: US)
  Receive Date: 20130530
  Receipt Date: 20130530
  Transmission Date: 20140414
  Serious: No
  Sender: FDA-Public Use
  Company Number: US-NOVEN-12US005539

PATIENT
  Age: 11 Year
  Sex: Male
  Weight: 29.48 kg

DRUGS (4)
  1. DAYTRANA [Suspect]
     Indication: ATTENTION DEFICIT/HYPERACTIVITY DISORDER
     Dosage: 10 MG, UNK
     Dates: start: 20120915, end: 201209
  2. DAYTRANA [Suspect]
     Dosage: 1 1/2 10MG
     Dates: start: 201209, end: 201209
  3. DAYTRANA [Suspect]
     Dosage: 2 X 10 MG, UNK
     Dates: start: 201209, end: 201209
  4. DAYTRANA [Suspect]
     Dosage: 20 MG, QD
     Route: 062
     Dates: start: 201210

REACTIONS (6)
  - Application site irritation [Not Recovered/Not Resolved]
  - Application site pain [Recovered/Resolved]
  - Application site urticaria [Not Recovered/Not Resolved]
  - Wrong technique in drug usage process [Recovered/Resolved]
  - Drug administration error [Not Recovered/Not Resolved]
  - Product quality issue [Not Recovered/Not Resolved]
